FAERS Safety Report 5016272-9 (Version None)
Quarter: 2006Q2

REPORT INFORMATION
  Report Type: 
  Country: None (occurrence: None)
  Receive Date: 20060414
  Receipt Date: 20060129
  Transmission Date: 20061013
  Serious: No
  Sender: FDA-Public Use
  Company Number: 2006SP000540

PATIENT
  Age: 50 Year
  Sex: Female

DRUGS (7)
  1. LUNESTA [Suspect]
     Indication: INSOMNIA
     Dosage: 3 MG;HS;ORAL
     Route: 048
     Dates: start: 20050401
  2. EFFEXOR [Concomitant]
  3. EXCEDRIN (MIGRAINE) [Concomitant]
  4. BENADRYL PLUS NIGHTTIME [Concomitant]
  5. PREMARIN [Concomitant]
  6. VITAMIN CAP [Concomitant]
  7. FISH OIL [Concomitant]

REACTIONS (1)
  - DYSGEUSIA [None]
